FAERS Safety Report 6272853-6 (Version None)
Quarter: 2009Q3

REPORT INFORMATION
  Report Type: 
  Country: None (occurrence: None)
  Receive Date: 20090717
  Receipt Date: 20090708
  Transmission Date: 20100115
  Serious: Yes (Hospitalization, Other)
  Sender: FDA-Public Use
  Company Number: JP-B.I. PHARMACEUTICALS,INC./RIDGEFIELD-2009-BP-07864NB

PATIENT
  Age: 55 Year
  Sex: Male

DRUGS (7)
  1. BI-SIFROL TABLETS [Suspect]
     Indication: PARKINSON'S DISEASE
     Route: 048
     Dates: start: 20090116
  2. METLIGINE [Suspect]
     Indication: ORTHOSTATIC HYPOTENSION
     Dosage: 4 MG
     Route: 048
  3. COMTAN [Concomitant]
     Indication: PARKINSON'S DISEASE
     Route: 048
     Dates: start: 20090116
  4. MENESIT [Concomitant]
     Indication: PARKINSON'S DISEASE
     Route: 048
     Dates: start: 20090116
  5. SYMMETREL [Concomitant]
     Indication: PARKINSON'S DISEASE
     Route: 048
     Dates: start: 20090116
  6. FP-OD [Concomitant]
     Indication: PARKINSON'S DISEASE
     Route: 048
     Dates: start: 20090116
  7. DOPS [Concomitant]
     Indication: PARKINSON'S DISEASE
     Route: 048
     Dates: start: 20090116

REACTIONS (6)
  - CONTUSION [None]
  - DIZZINESS POSTURAL [None]
  - FALL [None]
  - FRACTURED ISCHIUM [None]
  - HYPOTENSION [None]
  - LOSS OF CONSCIOUSNESS [None]
